FAERS Safety Report 15709159 (Version 1)
Quarter: 2018Q4

REPORT INFORMATION
  Report Type: Report from Study
  Country: US (occurrence: US)
  Receive Date: 20181211
  Receipt Date: 20181211
  Transmission Date: 20190205
  Serious: Yes (Other)
  Sender: FDA-Public Use
  Company Number: US-ROCHE-2102458

PATIENT
  Sex: Male
  Weight: 79.8 kg

DRUGS (4)
  1. NUTROPIN AQ [Suspect]
     Active Substance: SOMATROPIN
     Route: 058
  2. NUTROPIN AQ [Suspect]
     Active Substance: SOMATROPIN
     Indication: HYPOPITUITARISM
     Dosage: ONGOING: YES
     Route: 058
  3. NUTROPIN AQ [Suspect]
     Active Substance: SOMATROPIN
     Route: 058
  4. MOTRIN [Concomitant]
     Active Substance: IBUPROFEN
     Route: 065

REACTIONS (4)
  - Fatigue [Unknown]
  - Arthralgia [Unknown]
  - Growth retardation [Unknown]
  - Avulsion fracture [Unknown]
